FAERS Safety Report 8313059-6 (Version None)
Quarter: 2012Q2

REPORT INFORMATION
  Report Type: 
  Country: None (occurrence: None)
  Receive Date: 20120426
  Receipt Date: 20120423
  Transmission Date: 20120825
  Serious: Yes (Other)
  Sender: FDA-Public Use
  Company Number: NL-PFIZER INC-2012089038

PATIENT
  Age: 85 Year
  Sex: Male

DRUGS (1)
  1. XALATAN [Suspect]
     Dosage: UNK

REACTIONS (4)
  - LACRIMATION INCREASED [None]
  - COUGH [None]
  - BRONCHITIS [None]
  - INCREASED UPPER AIRWAY SECRETION [None]
